FAERS Safety Report 7031927-2 (Version None)
Quarter: 2010Q4

REPORT INFORMATION
  Report Type: 
  Country: None (occurrence: None)
  Receive Date: 20101001
  Receipt Date: 20100916
  Transmission Date: 20110411
  Serious: Yes (Hospitalization)
  Sender: FDA-Public Use
  Company Number: CZ-003523

PATIENT
  Sex: Male
  Weight: 102 kg

DRUGS (2)
  1. DEGARELIX (DEGARELIX) (240 MG, 480 MG) [Suspect]
     Indication: PROSTATE CANCER
     Dosage: 240 MG 1X SUBCUTANEOUS, (480 MG 1X3 MONTHS SUBCUTANEOUS)
     Route: 058
     Dates: start: 20091012, end: 20091012
  2. DEGARELIX (DEGARELIX) (240 MG, 480 MG) [Suspect]
     Indication: PROSTATE CANCER
     Dosage: 240 MG 1X SUBCUTANEOUS, (480 MG 1X3 MONTHS SUBCUTANEOUS)
     Route: 058
     Dates: start: 20091109

REACTIONS (3)
  - INJECTION SITE ABSCESS [None]
  - STAPHYLOCOCCAL ABSCESS [None]
  - WRONG TECHNIQUE IN DRUG USAGE PROCESS [None]
